FAERS Safety Report 9237510 (Version 1)
Quarter: 2013Q2

REPORT INFORMATION
  Report Type: Spontaneous
  Country: US (occurrence: US)
  Receive Date: 20130417
  Receipt Date: 20130417
  Transmission Date: 20140414
  Serious: No
  Sender: FDA-Public Use
  Company Number: US-009507513-1304USA008413

PATIENT
  Age: 38 Year
  Sex: Male
  Weight: 58.96 kg

DRUGS (2)
  1. CLARITIN REDITABS [Suspect]
     Indication: HYPERSENSITIVITY
     Dosage: 10 MG, UNK
  2. CLARITIN REDITABS [Suspect]
     Dosage: 20 MG, ONCE
     Route: 048
     Dates: start: 20130406

REACTIONS (2)
  - Headache [Recovering/Resolving]
  - Overdose [Unknown]
